FAERS Safety Report 15706104 (Version 1)
Quarter: 2018Q4

REPORT INFORMATION
  Report Type: Spontaneous
  Country: US (occurrence: US)
  Receive Date: 20181210
  Receipt Date: 20181210
  Transmission Date: 20190205
  Serious: Yes (Other)
  Sender: FDA-Public Use
  Company Number: US-SHIRE-US201847053

PATIENT
  Age: 67 Year
  Sex: Male

DRUGS (2)
  1. VONVENDI [Suspect]
     Active Substance: VON WILLEBRAND FACTOR (RECOMBINANT)
     Indication: VON WILLEBRAND^S DISEASE
     Dosage: 40 IU/KG, 3X A WEEK
     Route: 065
  2. HUMATE-P [Concomitant]
     Active Substance: HUMAN COAGULATION FACTOR VIII/VON WILLEBRAND FACTOR COMPLEX
     Indication: PRODUCT USED FOR UNKNOWN INDICATION

REACTIONS (2)
  - Ankle fracture [Unknown]
  - Pulmonary embolism [Unknown]
